FAERS Safety Report 9813326 (Version 2)
Quarter: 2014Q1

REPORT INFORMATION
  Report Type: Report from Study
  Country: SE (occurrence: SE)
  Receive Date: 20140113
  Receipt Date: 20140122
  Transmission Date: 20141002
  Serious: Yes (Life-Threatening)
  Sender: FDA-Public Use
  Company Number: SE-PFIZER INC-2014005766

PATIENT
  Age: 3 Day
  Sex: Female
  Weight: 3.4 kg

DRUGS (1)
  1. REVATIO [Suspect]
     Indication: PERSISTENT FOETAL CIRCULATION
     Dosage: 0.1 MG/KG, UNK
     Route: 042
     Dates: start: 20140102

REACTIONS (1)
  - Hypotension [Recovered/Resolved]
